FAERS Safety Report 26167292 (Version 2)
Quarter: 2025Q4

REPORT INFORMATION
  Report Type: Spontaneous
  Country: US (occurrence: US)
  Receive Date: 20251217
  Receipt Date: 20251222
  Transmission Date: 20260119
  Serious: No
  Sender: IPSEN BIOPHARMACEUTICALS, INC.
  Company Number: US-IPSEN Group, Research and Development-2024-22806

PATIENT
  Age: 14 Year
  Sex: Male
  Weight: 40.82 kg

DRUGS (2)
  1. INCRELEX [Suspect]
     Active Substance: MECASERMIN
     Indication: Primary insulin like growth factor-1 deficiency
     Dosage: STRENGTH: 40 MG/ 4 ML, BID
     Route: 058
     Dates: start: 20250108
  2. INCRELEX [Suspect]
     Active Substance: MECASERMIN
     Dosage: TWICE A DAY
     Dates: start: 20250608

REACTIONS (3)
  - Injection site pain [Unknown]
  - Product dose omission issue [Unknown]
  - Nasopharyngitis [Recovered/Resolved]

NARRATIVE: CASE EVENT DATE: 20251201
